FAERS Safety Report 7940327-X (Version None)
Quarter: 2011Q4

REPORT INFORMATION
  Report Type: 
  Country: None (occurrence: None)
  Receive Date: 20111126
  Receipt Date: 20110927
  Transmission Date: 20120403
  Serious: No
  Sender: FDA-Public Use
  Company Number: US-BAYER-2011-093791

PATIENT
  Age: 69 Year
  Sex: Female
  Weight: 56 kg

DRUGS (3)
  1. ALEVE (CAPLET) [Suspect]
     Indication: ARTHRITIS
     Dosage: 2 DF, BID
     Route: 048
     Dates: start: 20110531, end: 20110703
  2. FLECAINIDE ACETATE [Concomitant]
     Dosage: 2 DF, BID
     Route: 048
     Dates: start: 20110531, end: 20110630
  3. PRILOSEC [Concomitant]

REACTIONS (3)
  - URTICARIA [None]
  - NO ADVERSE EVENT [None]
  - RASH [None]
